FAERS Safety Report 8284969-3 (Version None)
Quarter: 2012Q2

REPORT INFORMATION
  Report Type: 
  Country: None (occurrence: None)
  Receive Date: 20120413
  Receipt Date: 20110613
  Transmission Date: 20120825
  Serious: No
  Sender: FDA-Public Use
  Company Number: US-ASTRAZENECA-2011SE36166

PATIENT
  Sex: Female

DRUGS (14)
  1. AVANDAMET [Concomitant]
     Dosage: 4-1000 MG
  2. ARTHROTEC [Concomitant]
  3. FLEXERIL [Concomitant]
  4. PREMARIN [Concomitant]
  5. HYDROCHLOROTHIAZIDE [Concomitant]
  6. PROZAC [Concomitant]
  7. METFORMIN HCL [Concomitant]
     Dosage: 1000
  8. SYNTHROID [Concomitant]
     Dosage: 0.05 MG
  9. TIAZAC [Concomitant]
  10. ALLEGRA [Concomitant]
  11. LISINOPRIL [Suspect]
     Route: 048
  12. LANTUS [Concomitant]
     Dosage: 100 UNIT/ML
  13. NEXIUM [Suspect]
     Route: 048
  14. PRAVASTATIN SODIUM [Concomitant]

REACTIONS (7)
  - ANXIETY [None]
  - DEPRESSION [None]
  - ESSENTIAL HYPERTENSION [None]
  - COUGH [None]
  - CONJUNCTIVITIS INFECTIVE [None]
  - DRUG HYPERSENSITIVITY [None]
  - TYPE 2 DIABETES MELLITUS [None]
